FAERS Safety Report 5363271-3 (Version None)
Quarter: 2007Q2

REPORT INFORMATION
  Report Type: 
  Country: None (occurrence: None)
  Receive Date: 20070620
  Receipt Date: 20070614
  Transmission Date: 20071010
  Serious: No
  Sender: FDA-Public Use
  Company Number: BE-BAXTER-2007BH005431

PATIENT
  Age: 66 Year
  Sex: Male

DRUGS (10)
  1. DIANEAL [Suspect]
     Indication: PERITONEAL DIALYSIS
     Dosage: DOSE UNIT:UNKNOWN
     Route: 033
  2. CELLCEPT [Concomitant]
  3. TACROLIMUS [Concomitant]
  4. MEDROL [Concomitant]
  5. MAALOX                                  /NET/ [Concomitant]
  6. PERSANTINE [Concomitant]
  7. VALCYTE [Concomitant]
  8. OMEPRAZOLE [Concomitant]
  9. FLUTICASONE PROPIONATE [Concomitant]
  10. PD SOLUTION 2.27 % [Concomitant]

REACTIONS (3)
  - ASCITES [None]
  - INTESTINAL OBSTRUCTION [None]
  - SCLEROSING ENCAPSULATING PERITONITIS [None]
